FAERS Safety Report 9091480 (Version 1)
Quarter: 2013Q1

REPORT INFORMATION
  Report Type: Spontaneous
  Country: US (occurrence: US)
  Receive Date: 20130201
  Receipt Date: 20130201
  Transmission Date: 20140127
  Serious: Yes (Other)
  Sender: FDA-Public Use
  Company Number: US-PFIZER INC-2013042574

PATIENT
  Age: 54 Year
  Sex: Female
  Weight: 88.44 kg

DRUGS (4)
  1. ZOLOFT [Suspect]
     Indication: DEPRESSION
     Dosage: UNK
  2. SERTRALINE HCL [Suspect]
     Indication: DEPRESSION
     Dosage: 150 MG, DAILY
  3. ZOLPIDEM TARTRATE [Concomitant]
     Indication: INSOMNIA
     Dosage: 10 MG, DAILY AT NIGHT
  4. ABILIFY [Concomitant]
     Indication: DRUG THERAPY ENHANCEMENT
     Dosage: 10 MG, DAILY

REACTIONS (1)
  - Bipolar disorder [Unknown]
